FAERS Safety Report 19775884 (Version 1)
Quarter: 2021Q3

REPORT INFORMATION
  Report Type: Spontaneous
  Country: US (occurrence: US)
  Receive Date: 20210901
  Receipt Date: 20210901
  Transmission Date: 20211014
  Serious: Yes (Other)
  Sender: FDA-Public Use
  Company Number: NVSC2021US191790

PATIENT
  Sex: Female
  Weight: 56.7 kg

DRUGS (6)
  1. JANUVIA [Concomitant]
     Active Substance: SITAGLIPTIN PHOSPHATE
     Indication: DIABETES MELLITUS
     Dosage: 100 MG, QD (TAKES 1, 100MG TABLET IN THE MORNING, BY MOUTH)
     Route: 048
     Dates: start: 2008
  2. KIRKLAND SIGNATURE ALLERCLEAR [Concomitant]
     Active Substance: LORATADINE
     Indication: HYPERSENSITIVITY
     Dosage: UNK, QD (NOT SURE OF DOSAGE, ONCE IN THE MORNING, BY MOUTH)
     Route: 048
  3. SIMVASTATIN. [Suspect]
     Active Substance: SIMVASTATIN
     Indication: BLOOD CHOLESTEROL ABNORMAL
     Dosage: UNK
     Route: 065
  4. LOSARTAN. [Concomitant]
     Active Substance: LOSARTAN
     Indication: HYPERTENSION
     Dosage: 25 MG, QD (25 MG, TAKES ONE PILL IN THE MORNING, BY MOUTH)
     Route: 048
  5. TACROLIMUS. [Suspect]
     Active Substance: TACROLIMUS
     Indication: IMMUNOSUPPRESSION
     Dosage: 0.5 MG IN THE MORNING, AT NIGHT 0.5MG, BY MOUTH
     Route: 048
  6. ZORTRESS [Suspect]
     Active Substance: EVEROLIMUS
     Indication: IMMUNOSUPPRESSION
     Dosage: TAKES 2, 0.5 MG TABLETS IN THE MORNING AND 1, 0.5 MG
     Route: 048

REACTIONS (15)
  - Hypersensitivity [Unknown]
  - Hypotension [Unknown]
  - Tibia fracture [Unknown]
  - Pain in extremity [Recovered/Resolved]
  - Syncope [Unknown]
  - Loss of consciousness [Unknown]
  - Eosinophil count increased [Unknown]
  - Muscle spasms [Recovered/Resolved]
  - Hyponatraemia [Unknown]
  - Fatigue [Recovered/Resolved]
  - Blood pressure fluctuation [Unknown]
  - Hypertension [Unknown]
  - White blood cell count increased [Unknown]
  - Vaccination site pain [Recovered/Resolved]
  - Fibula fracture [Unknown]

NARRATIVE: CASE EVENT DATE: 2017
